FAERS Safety Report 17206386 (Version 4)
Quarter: 2020Q4

REPORT INFORMATION
  Report Type: Report from Study
  Country: JP (occurrence: JP)
  Receive Date: 20191227
  Receipt Date: 20201022
  Transmission Date: 20210113
  Serious: Yes (Other)
  Sender: FDA-Public Use
  Company Number: JP-VIIV HEALTHCARE LIMITED-JP2019JPN235910

PATIENT
  Age: 42 Year
  Sex: Male

DRUGS (8)
  1. SINGULAIR TABLETS [Concomitant]
     Dosage: UNK
  2. ZOLPIDEM TARTRATE OD TABLET [Concomitant]
     Dosage: UNK
     Dates: start: 20200206
  3. BROTIZOLAM OD TABLETS [Concomitant]
     Dosage: UNK
     Dates: end: 20190731
  4. LUNESTA TABLETS [Concomitant]
     Dosage: UNK
     Dates: start: 20200206
  5. BILANOA TABLET [Concomitant]
     Dosage: UNK
  6. ABACAVIRSULPHATE+DOLUTEGRAVIR+LAMIVUDINE [Suspect]
     Active Substance: ABACAVIR SULFATE\DOLUTEGRAVIR SODIUM\LAMIVUDINE
     Indication: HIV INFECTION
     Dosage: 1 DF, 1D
     Route: 048
     Dates: start: 20150612
  7. GLUBES [Concomitant]
     Active Substance: MITIGLINIDE CALCIUM HYDRATE\VOGLIBOSE
     Dosage: UNK
  8. TRULICITY SUBCUTANEOUS INJECTION [Concomitant]
     Dosage: UNK
     Dates: start: 20171221

REACTIONS (1)
  - Diabetes mellitus [Not Recovered/Not Resolved]

NARRATIVE: CASE EVENT DATE: 20181220
